FAERS Safety Report 10195835 (Version 1)
Quarter: 2014Q2

REPORT INFORMATION
  Report Type: Spontaneous
  Country: CA (occurrence: None)
  Receive Date: 20140519
  Receipt Date: 20140519
  Transmission Date: 20141212
  Serious: Yes (Hospitalization)
  Sender: FDA-Public Use
  Company Number: B0993467A

PATIENT
  Age: 61 Year
  Sex: Female

DRUGS (2)
  1. FLUTICASONE+SALMETEROL [Suspect]
     Indication: ASTHMA
     Dosage: 2 PUFF (S) / TWICE PER DAY / INHALED
     Route: 055
     Dates: start: 2003
  2. SALBUTAMOL SULPHATE [Suspect]
     Indication: ASTHMA
     Dates: start: 2003

REACTIONS (11)
  - Adrenal insufficiency [None]
  - Pulmonary embolism [None]
  - Cushingoid [None]
  - Ecchymosis [None]
  - Blood sodium increased [None]
  - Blood corticotrophin abnormal [None]
  - Weight increased [None]
  - Fatigue [None]
  - Muscular weakness [None]
  - Contusion [None]
  - Hypertension [None]
